FAERS Safety Report 4625229-9 (Version None)
Quarter: 2005Q2

REPORT INFORMATION
  Report Type: 
  Country: None (occurrence: None)
  Receive Date: 20050401
  Receipt Date: 20050309
  Transmission Date: 20051028
  Serious: Yes (Other)
  Sender: FDA-Public Use
  Company Number: JP-ROCHE-398690

PATIENT
  Age: 40 Year
  Sex: Female

DRUGS (6)
  1. TAMIFLU [Suspect]
     Indication: INFLUENZA
     Route: 048
     Dates: start: 20050222, end: 20050225
  2. ANTITUSSIVE NOS [Concomitant]
     Indication: DRUG USE FOR UNKNOWN INDICATION
     Route: 065
  3. NARCOTINE [Concomitant]
     Route: 048
     Dates: start: 20050222, end: 20050223
  4. LYZYME [Concomitant]
     Route: 048
     Dates: start: 20050222, end: 20050223
  5. LOXOPROFEN SODIUM [Concomitant]
     Route: 048
     Dates: start: 20050222, end: 20050223
  6. BROCIN-CODEINE [Concomitant]
     Route: 048
     Dates: start: 20050222, end: 20050223

REACTIONS (2)
  - FACE OEDEMA [None]
  - RASH [None]
